FAERS Safety Report 20849317 (Version 1)
Quarter: 2022Q2

REPORT INFORMATION
  Report Type: Spontaneous
  Country: ES (occurrence: ES)
  Receive Date: 20220519
  Receipt Date: 20220519
  Transmission Date: 20220721
  Serious: Yes (Death)
  Sender: FDA-Public Use
  Company Number: ES-PERRIGO-22ES007040

PATIENT
  Age: 38 Year
  Sex: Female

DRUGS (5)
  1. DOXYLAMINE SUCCINATE [Suspect]
     Active Substance: DOXYLAMINE SUCCINATE
     Indication: Intentional overdose
     Dosage: UNKNOWN, UNKNOWN
     Route: 048
  2. QUETIAPINE [Concomitant]
     Active Substance: QUETIAPINE
     Indication: Product used for unknown indication
     Route: 065
  3. LITHIUM [Concomitant]
     Active Substance: LITHIUM
     Indication: Product used for unknown indication
     Dosage: UNK, UNK
     Route: 065
  4. VORTIOXETINE [Concomitant]
     Active Substance: VORTIOXETINE
     Indication: Product used for unknown indication
     Dosage: UNK, UNK
     Route: 065
  5. ALBUTEROL [Concomitant]
     Active Substance: ALBUTEROL
     Indication: Product used for unknown indication
     Dosage: UNK, UNK
     Route: 065

REACTIONS (6)
  - Intentional overdose [Fatal]
  - Cardiac arrest [Fatal]
  - Acute kidney injury [Fatal]
  - Rhabdomyolysis [Fatal]
  - Cardiogenic shock [Fatal]
  - Septic shock [Fatal]
